FAERS Safety Report 21440883 (Version 1)
Quarter: 2022Q4

REPORT INFORMATION
  Report Type: Spontaneous
  Country: FR (occurrence: FR)
  Receive Date: 20221011
  Receipt Date: 20221011
  Transmission Date: 20230113
  Serious: Yes (Other)
  Sender: FDA-Public Use
  Company Number: FR-002147023-NVSC2022FR186180

PATIENT
  Age: 45 Year
  Sex: Male

DRUGS (4)
  1. CLOMIPRAMINE [Suspect]
     Active Substance: CLOMIPRAMINE
     Indication: Obsessive-compulsive disorder
     Dosage: 75 MILLIGRAM, FILM COATED TABLET
     Route: 048
  2. CLOMIPRAMINE [Suspect]
     Active Substance: CLOMIPRAMINE
     Indication: Depression suicidal
  3. PRAZEPAM [Concomitant]
     Active Substance: PRAZEPAM
     Indication: Product used for unknown indication
     Dosage: UNK
     Route: 065
  4. TRANXENE [Concomitant]
     Active Substance: CLORAZEPATE DIPOTASSIUM
     Indication: Product used for unknown indication
     Dosage: QD (UNK, QD, (25-30 MG))
     Route: 065

REACTIONS (8)
  - Cerebral disorder [Unknown]
  - Trismus [Unknown]
  - Confusional state [Unknown]
  - Serotonin syndrome [Unknown]
  - Hypertonia [Unknown]
  - Headache [Unknown]
  - Nausea [Unknown]
  - Withdrawal syndrome [Unknown]
